FAERS Safety Report 11170093 (Version 3)
Quarter: 2015Q3

REPORT INFORMATION
  Report Type: Spontaneous
  Country: JP (occurrence: JP)
  Receive Date: 20150608
  Receipt Date: 20150728
  Transmission Date: 20151125
  Serious: Yes (Other)
  Sender: FDA-Public Use
  Company Number: JP-ROCHE-1589566

PATIENT
  Age: 64 Year
  Sex: Female
  Weight: 46 kg

DRUGS (5)
  1. SIMVASTATIN. [Concomitant]
     Active Substance: SIMVASTATIN
     Indication: HYPERCHOLESTEROLAEMIA
     Route: 048
  2. THYRADIN-S [Concomitant]
     Active Substance: LEVOTHYROXINE
     Indication: HYPOTHYROIDISM
     Route: 048
  3. EPADEL-S [Concomitant]
     Active Substance: ETHYL ICOSAPENTATE\ICOSAPENT
     Indication: HYPERCHOLESTEROLAEMIA
     Route: 048
  4. BONVIVA [Suspect]
     Active Substance: IBANDRONATE SODIUM
     Indication: OSTEOPOROSIS
     Route: 042
     Dates: start: 20140707, end: 20150302
  5. CALCITRIOL. [Concomitant]
     Active Substance: CALCITRIOL
     Route: 042

REACTIONS (1)
  - Blood parathyroid hormone increased [Not Recovered/Not Resolved]

NARRATIVE: CASE EVENT DATE: 20150202
